FAERS Safety Report 5529361-7 (Version None)
Quarter: 2007Q4

REPORT INFORMATION
  Report Type: 
  Country: None (occurrence: None)
  Receive Date: 20071129
  Receipt Date: 20071121
  Transmission Date: 20080405
  Serious: Yes (Life-Threatening, Hospitalization, Other)
  Sender: FDA-Public Use
  Company Number: A0695638A

PATIENT
  Age: 43 Year
  Sex: Female

DRUGS (8)
  1. LAMICTAL [Suspect]
     Indication: BIPOLAR DISORDER
     Dosage: 50MG TWICE PER DAY
     Route: 048
     Dates: start: 20071101, end: 20071120
  2. MEDROL [Concomitant]
  3. SYNTHROID [Concomitant]
  4. LISINOPRIL [Concomitant]
  5. KLONOPIN [Concomitant]
  6. BUPROPION HCL [Concomitant]
  7. NAMENDA [Concomitant]
  8. TRAZODONE HCL [Concomitant]

REACTIONS (3)
  - HYPERTENSION [None]
  - PANCYTOPENIA [None]
  - SEPSIS [None]
